FAERS Safety Report 23253240 (Version 1)
Quarter: 2023Q4

REPORT INFORMATION
  Report Type: Spontaneous
  Country: US (occurrence: US)
  Receive Date: 20231202
  Receipt Date: 20231202
  Transmission Date: 20240109
  Serious: Yes (Life-Threatening, Hospitalization, Other)
  Sender: FDA-Public Use
  Company Number: US-MLMSERVICE-20231116-4669412-1

PATIENT
  Age: 39 Year
  Sex: Female

DRUGS (1)
  1. BUDESONIDE [Suspect]
     Active Substance: BUDESONIDE
     Indication: Colitis microscopic
     Dosage: 9 MILLIGRAM, ONCE A DAY
     Route: 065

REACTIONS (1)
  - Adrenal insufficiency [Recovering/Resolving]
